FAERS Safety Report 4790939-X (Version None)
Quarter: 2005Q3

REPORT INFORMATION
  Report Type: 
  Country: None (occurrence: None)
  Receive Date: 20050914
  Receipt Date: 20040803
  Transmission Date: 20060218
  Serious: Yes (Hospitalization)
  Sender: FDA-Public Use
  Company Number: 163-20785-04050134

PATIENT
  Age: 64 Year
  Sex: Female

DRUGS (12)
  1. THALOMID [Suspect]
     Indication: MULTIPLE MYELOMA
     Dosage: 200 MG, QD, ORAL
     Route: 048
     Dates: start: 20040401, end: 20040401
  2. DECADRON [Suspect]
     Indication: MULTIPLE MYELOMA
     Dosage: 40 MG, TIMES 4 DAYS EVERY TWO WEEKS,
     Dates: start: 20040101
  3. INHALERS [Concomitant]
  4. NORVASC [Concomitant]
  5. BUMEX [Concomitant]
  6. DIGOXIN [Concomitant]
  7. COLACE (DOCUSATE SODIUM) [Concomitant]
  8. ZANTAC [Concomitant]
  9. IMDUR [Concomitant]
  10. SYNTHROID [Concomitant]
  11. PAXIL [Concomitant]
  12. COUMADIN [Concomitant]

REACTIONS (1)
  - PSYCHOTIC DISORDER [None]
